FAERS Safety Report 7838527 (Version 3)
Quarter: 2013Q2

REPORT INFORMATION
  Report Type: Spontaneous
  Country: GB (occurrence: GB)
  Receive Date: 20110303
  Receipt Date: 20130528
  Transmission Date: 20140414
  Serious: Yes (Congenital Anomaly, Other)
  Sender: FDA-Public Use
  Company Number: GB-JNJFOC-20110206211

PATIENT
  Sex: Female
  Weight: 3.46 kg

DRUGS (5)
  1. COCODAMOL [Suspect]
     Indication: FOETAL EXPOSURE DURING PREGNANCY
     Route: 064
     Dates: start: 20090106
  2. HYDROXOCOBALAMIN [Suspect]
     Indication: FOETAL EXPOSURE DURING PREGNANCY
     Route: 064
     Dates: start: 20091216
  3. LYRICA [Suspect]
     Indication: FOETAL EXPOSURE DURING PREGNANCY
     Route: 064
     Dates: start: 20080815
  4. OMEPRAZOLE [Suspect]
     Indication: FOETAL EXPOSURE DURING PREGNANCY
     Route: 064
     Dates: start: 20081016
  5. FOLIC ACID [Suspect]
     Indication: FOETAL EXPOSURE DURING PREGNANCY
     Route: 064
     Dates: start: 200905

REACTIONS (3)
  - Developmental hip dysplasia [Unknown]
  - Pelvic deformity [Unknown]
  - Foetal exposure during pregnancy [Recovered/Resolved]
